FAERS Safety Report 21046803 (Version 1)
Quarter: 2022Q3

REPORT INFORMATION
  Report Type: Spontaneous
  Country: US (occurrence: None)
  Receive Date: 20220705
  Receipt Date: 20220705
  Transmission Date: 20221027
  Serious: No
  Sender: FDA-Public Use
  Company Number: None

PATIENT
  Sex: Male
  Weight: 99.34 kg

DRUGS (7)
  1. ABIRATERONE [Suspect]
     Active Substance: ABIRATERONE
     Indication: Prostate cancer
     Dosage: FREQUENCY : DAILY;?
     Route: 048
     Dates: start: 202104, end: 202207
  2. LUPRON [Concomitant]
     Active Substance: LEUPROLIDE ACETATE
  3. ORGOVYX [Concomitant]
     Active Substance: RELUGOLIX
  4. MORPHONE [Concomitant]
  5. OXYCODONE [Concomitant]
     Active Substance: OXYCODONE
  6. PREDNISONE [Concomitant]
     Active Substance: PREDNISONE
  7. PROGRAF [Concomitant]
     Active Substance: TACROLIMUS

REACTIONS (1)
  - Disease progression [None]
